FAERS Safety Report 8152036-5 (Version None)
Quarter: 2012Q1

REPORT INFORMATION
  Report Type: 
  Country: None (occurrence: None)
  Receive Date: 20120214
  Receipt Date: 20120208
  Transmission Date: 20120608
  Serious: Yes (Death, Other)
  Sender: FDA-Public Use
  Company Number: AUR-APL-2012-00858

PATIENT
  Age: 36 Year
  Sex: Male

DRUGS (8)
  1. OMEPRAZOLE [Concomitant]
  2. ARIPIPRAZOLE [Suspect]
     Indication: SCHIZOPHRENIA
     Dosage: (5 MG), ORAL
     Route: 048
  3. SIMVASTATIN [Suspect]
     Indication: PRODUCT USED FOR UNKNOWN INDICATION
     Dosage: ORAL
     Route: 048
  4. CLOZAPINE [Suspect]
     Indication: SCHIZOPHRENIA
     Dosage: (450 MG), ORAL
     Route: 048
     Dates: end: 20120109
  5. WARFARIN SODIUM [Concomitant]
  6. CLONAZEPAM [Concomitant]
  7. FOLIC ACID [Concomitant]
  8. VALPROATE SODIUM [Concomitant]

REACTIONS (5)
  - CIRCULATORY COLLAPSE [None]
  - FALL [None]
  - RENAL IMPAIRMENT [None]
  - NEUROLEPTIC MALIGNANT SYNDROME [None]
  - HAEMOGLOBIN DECREASED [None]
